FAERS Safety Report 12218603 (Version 1)
Quarter: 2016Q1

REPORT INFORMATION
  Report Type: Spontaneous
  Country: BR (occurrence: BR)
  Receive Date: 20160329
  Receipt Date: 20160329
  Transmission Date: 20160526
  Serious: Yes (Death, Hospitalization, Other)
  Sender: FDA-Public Use
  Company Number: BR-BAYER-2016-056594

PATIENT
  Age: 39 Year
  Sex: Male
  Weight: 97 kg

DRUGS (2)
  1. ULTRAVIST [Suspect]
     Active Substance: IOPROMIDE
     Indication: COMPUTERISED TOMOGRAM ABDOMEN
     Dosage: 100 ML, ONCE
     Route: 042
     Dates: start: 20160321, end: 20160321
  2. ULTRAVIST [Suspect]
     Active Substance: IOPROMIDE
     Indication: SPLENOMEGALY

REACTIONS (12)
  - Cardio-respiratory arrest [None]
  - Apnoea [None]
  - Agitation [None]
  - Pulseless electrical activity [None]
  - Dyspnoea [None]
  - Carotid pulse abnormal [None]
  - Seizure like phenomena [None]
  - Chest pain [None]
  - Pallor [None]
  - Muscular weakness [None]
  - Acute myocardial infarction [Fatal]
  - Malaise [None]

NARRATIVE: CASE EVENT DATE: 20160321
